FAERS Safety Report 15343471 (Version 10)
Quarter: 2019Q3

REPORT INFORMATION
  Report Type: Spontaneous
  Country: US (occurrence: US)
  Receive Date: 20180903
  Receipt Date: 20190809
  Transmission Date: 20191004
  Serious: Yes (Hospitalization, Other)
  Sender: FDA-Public Use
  Company Number: US-PFIZER INC-2016369193

PATIENT
  Sex: Female
  Weight: 93 kg

DRUGS (3)
  1. LYRICA [Suspect]
     Active Substance: PREGABALIN
     Indication: HYPOAESTHESIA
     Dosage: 75 MG, 2X/DAY
     Route: 048
  2. LYRICA [Suspect]
     Active Substance: PREGABALIN
     Indication: PAIN IN EXTREMITY
     Dosage: 50 MG, 3X/DAY
     Route: 048
  3. LYRICA [Suspect]
     Active Substance: PREGABALIN
     Indication: NEUROPATHY PERIPHERAL

REACTIONS (12)
  - Neuropathy peripheral [Unknown]
  - Hip fracture [Unknown]
  - Balance disorder [Unknown]
  - Drug ineffective [Unknown]
  - Product dispensing error [Unknown]
  - Diverticulitis [Recovered/Resolved]
  - Paralysis [Unknown]
  - Muscle spasms [Unknown]
  - Gait disturbance [Recovered/Resolved]
  - Lyme disease [Unknown]
  - Back pain [Unknown]
  - Arthralgia [Unknown]
